FAERS Safety Report 7243236-7 (Version None)
Quarter: 2011Q1

REPORT INFORMATION
  Report Type: 
  Country: None (occurrence: None)
  Receive Date: 20110125
  Receipt Date: 20110114
  Transmission Date: 20110831
  Serious: Yes (Hospitalization)
  Sender: FDA-Public Use
  Company Number: US-ASTRAZENECA-2011SE02658

PATIENT
  Age: 85 Year
  Sex: Female

DRUGS (7)
  1. CRESTOR [Suspect]
     Route: 048
  2. LEXXEL [Concomitant]
     Indication: HYPERTENSION
     Route: 065
  3. TOPROL-XL [Concomitant]
     Indication: HYPERTENSION
     Route: 048
  4. CRESTOR [Suspect]
     Indication: BLOOD CHOLESTEROL INCREASED
     Route: 048
  5. CRESTOR [Suspect]
     Indication: ARTERIOSCLEROSIS
     Route: 048
  6. CRESTOR [Suspect]
     Route: 048
  7. RINEXA [Concomitant]
     Route: 065

REACTIONS (8)
  - CHOLELITHIASIS [None]
  - RECTAL DISCHARGE [None]
  - BLOOD SODIUM DECREASED [None]
  - RECTAL HAEMORRHAGE [None]
  - WRONG TECHNIQUE IN DRUG USAGE PROCESS [None]
  - DRUG DOSE OMISSION [None]
  - LIVER FUNCTION TEST ABNORMAL [None]
  - NAUSEA [None]
